FAERS Safety Report 16015340 (Version 1)
Quarter: 2019Q1

REPORT INFORMATION
  Report Type: Report from Study
  Country: None (occurrence: CO)
  Receive Date: 20190228
  Receipt Date: 20190228
  Transmission Date: 20190418
  Serious: Yes (Other)
  Sender: FDA-Public Use
  Company Number: CO-ABBVIE-19K-036-2682616-00

PATIENT
  Age: 24 Year
  Sex: Male

DRUGS (1)
  1. HUMIRA [Suspect]
     Active Substance: ADALIMUMAB
     Indication: HIDRADENITIS
     Route: 058
     Dates: start: 20180830, end: 20190117

REACTIONS (3)
  - Hidradenitis [Recovering/Resolving]
  - Neck mass [Recovering/Resolving]
  - Testicular mass [Recovering/Resolving]

NARRATIVE: CASE EVENT DATE: 201902
